FAERS Safety Report 20103600 (Version 1)
Quarter: 2021Q4

REPORT INFORMATION
  Report Type: Spontaneous
  Country: US (occurrence: None)
  Receive Date: 20211123
  Receipt Date: 20211123
  Transmission Date: 20220303
  Serious: No
  Sender: FDA-Public Use
  Company Number: None

PATIENT
  Age: 72 Year
  Sex: Female
  Weight: 85.5 kg

DRUGS (2)
  1. CASIRIVIMAB\IMDEVIMAB [Suspect]
     Active Substance: CASIRIVIMAB\IMDEVIMAB
     Indication: COVID-19
     Dosage: OTHER FREQUENCY : 1 TIME INFUSION;?
     Route: 041
  2. OXYGEN [Concomitant]
     Active Substance: OXYGEN
     Dates: start: 20211120

REACTIONS (2)
  - COVID-19 [None]
  - Hypoxia [None]

NARRATIVE: CASE EVENT DATE: 20211120
